FAERS Safety Report 20544759 (Version 1)
Quarter: 2022Q1

REPORT INFORMATION
  Report Type: Spontaneous
  Country: US (occurrence: US)
  Receive Date: 20220303
  Receipt Date: 20220303
  Transmission Date: 20220424
  Serious: Yes (Other)
  Sender: FDA-Public Use
  Company Number: US-AUROBINDO-AUR-APL-2022-007028

PATIENT
  Age: 34 Year
  Sex: Female

DRUGS (1)
  1. ALBUTEROL [Suspect]
     Active Substance: ALBUTEROL
     Indication: Drug abuse
     Dosage: 76 NANOGRAM PER DECILITRE
     Route: 065

REACTIONS (5)
  - Hypokalaemia [Recovered/Resolved]
  - Lactic acidosis [Recovered/Resolved]
  - Drug abuse [Unknown]
  - Metabolic disorder [Recovered/Resolved]
  - Sinus tachycardia [Recovered/Resolved]
